FAERS Safety Report 23248394 (Version 1)
Quarter: 2023Q4

REPORT INFORMATION
  Report Type: Report from Study
  Country: NL (occurrence: NL)
  Receive Date: 20231201
  Receipt Date: 20231201
  Transmission Date: 20240110
  Serious: Yes (Hospitalization, Other)
  Sender: FDA-Public Use
  Company Number: NL-ABBVIE-5519978

PATIENT
  Sex: Female

DRUGS (5)
  1. CARBIDOPA\LEVODOPA [Suspect]
     Active Substance: CARBIDOPA\LEVODOPA
     Indication: Parkinson^s disease
     Dosage: CD: 2.1ML/H?REMAINS AT 16 HOURS
     Route: 050
     Dates: start: 20230102, end: 20230117
  2. CARBIDOPA\LEVODOPA [Suspect]
     Active Substance: CARBIDOPA\LEVODOPA
     Dosage: MD: 5.3 ML, CD: 2.1ML/H, ED: 1.3ML?REMAINS AT 16 HOURS
     Route: 050
     Dates: start: 20230117, end: 20230629
  3. CARBIDOPA\LEVODOPA [Suspect]
     Active Substance: CARBIDOPA\LEVODOPA
     Dosage: MD: 5.1 ML, CD: 2.4ML/H, ED: 1.3ML?REMAINS AT 16 HOURS
     Route: 050
     Dates: start: 20230629
  4. CARBIDOPA\LEVODOPA [Suspect]
     Active Substance: CARBIDOPA\LEVODOPA
     Route: 050
     Dates: start: 20171010
  5. PRAMIPEXOLE [Concomitant]
     Active Substance: PRAMIPEXOLE
     Indication: Product used for unknown indication

REACTIONS (16)
  - Shoulder arthroplasty [Not Recovered/Not Resolved]
  - Obsessive-compulsive disorder [Unknown]
  - Muscular weakness [Not Recovered/Not Resolved]
  - Dyskinesia [Not Recovered/Not Resolved]
  - Carpal tunnel syndrome [Not Recovered/Not Resolved]
  - Memory impairment [Not Recovered/Not Resolved]
  - Nervous system disorder [Not Recovered/Not Resolved]
  - Stoma site discharge [Not Recovered/Not Resolved]
  - Muscle rigidity [Not Recovered/Not Resolved]
  - Decubitus ulcer [Not Recovered/Not Resolved]
  - Bowel movement irregularity [Not Recovered/Not Resolved]
  - Hallucination [Unknown]
  - On and off phenomenon [Not Recovered/Not Resolved]
  - Fistula discharge [Not Recovered/Not Resolved]
  - Stoma site reaction [Not Recovered/Not Resolved]
  - Stoma site erythema [Not Recovered/Not Resolved]

NARRATIVE: CASE EVENT DATE: 20230901
